FAERS Safety Report 8248783 (Version 8)
Quarter: 2013Q4

REPORT INFORMATION
  Report Type: Report from Study
  Country: BR (occurrence: BR)
  Receive Date: 20111117
  Receipt Date: 20131101
  Transmission Date: 20140711
  Serious: Yes (Other)
  Sender: FDA-Public Use
  Company Number: PHHY2011BR099593

PATIENT
  Age: 12 Year
  Sex: Male
  Weight: 47 kg

DRUGS (13)
  1. RITALINA [Suspect]
     Indication: PSYCHOMOTOR HYPERACTIVITY
     Dosage: 10 MG, QD ( TABLET IN THE MORNING BEFORE GOING TO SCHOOL)
     Route: 048
  2. RITALINA [Suspect]
     Dosage: 10 MG, BID (ONE 10 MG TABLET IN THE MORNING AND ONE 10 MG TABLET IN THE AFTERNOON)
     Route: 048
  3. RITALINA [Suspect]
     Dosage: 20 MG, DAILY
     Route: 048
  4. RITALINA [Suspect]
     Dosage: 60 MG, QD (6 X10 MG TABLET, QD)
  5. RITALINA [Suspect]
     Dosage: 20 MG, DAILY (TWO 10 MG TABLETS, DAILY)
     Route: 048
  6. RITALIN LA [Suspect]
     Indication: PSYCHOMOTOR HYPERACTIVITY
     Dosage: 10 MG, 1 DF, QD
  7. RITALIN LA [Suspect]
     Dosage: 30 MG, DAILY (1 CAPSULE A DAY)
  8. RITALIN LA [Suspect]
     Dosage: 30 MG, BID (ONE 30 MG CAPSULE AT 8:00 AM AND ANOTHER AT 10:00 AM)
  9. RITALIN LA [Suspect]
     Dosage: 20 MG, DAILY
     Route: 048
  10. TEGRETOL [Concomitant]
     Indication: BIPOLAR DISORDER
     Dosage: 1 DF, QD
     Route: 048
  11. DEPAKOTE [Concomitant]
     Indication: BIPOLAR DISORDER
     Dosage: 1 DF, QD
     Route: 048
  12. ZARGUS [Concomitant]
     Indication: BIPOLAR DISORDER
     Dosage: 1 DF, QD
     Route: 048
  13. VENVANSE [Concomitant]
     Indication: PSYCHOMOTOR HYPERACTIVITY
     Dosage: 1 DF, Q12H
     Route: 048

REACTIONS (10)
  - Intermittent explosive disorder [Not Recovered/Not Resolved]
  - Aggression [Not Recovered/Not Resolved]
  - Anaemia [Recovered/Resolved]
  - Eye disorder [Not Recovered/Not Resolved]
  - Hypophagia [Unknown]
  - Agitation [Not Recovered/Not Resolved]
  - Decreased appetite [Not Recovered/Not Resolved]
  - Nausea [Unknown]
  - Depressed mood [Not Recovered/Not Resolved]
  - Drug ineffective [Unknown]
